FAERS Safety Report 9038117 (Version 1)
Quarter: 2013Q1

REPORT INFORMATION
  Report Type: Spontaneous
  Country: CO (occurrence: CO)
  Receive Date: 20130129
  Receipt Date: 20130129
  Transmission Date: 20140127
  Serious: Yes (Hospitalization)
  Sender: FDA-Public Use
  Company Number: CO-ASTRAZENECA-2013SE05717

PATIENT
  Age: 80 Day
  Sex: Female
  Weight: 3.2 kg

DRUGS (1)
  1. SYNAGIS [Suspect]
     Indication: PREMATURE BABY
     Route: 030
     Dates: start: 20121121, end: 20130122

REACTIONS (3)
  - Bronchiolitis [Unknown]
  - Haematochezia [Unknown]
  - Vomiting [Unknown]
